FAERS Safety Report 9203398 (Version 1)
Quarter: 2013Q1

REPORT INFORMATION
  Report Type: Spontaneous
  Country: US (occurrence: None)
  Receive Date: 20120709
  Receipt Date: 20120709
  Transmission Date: 20140127
  Serious: Yes (Other)
  Sender: FDA-Public Use
  Company Number: PHEH2012US004519

PATIENT
  Age: 38 Year
  Sex: Male

DRUGS (4)
  1. GLEEVEC (IMATINIB) UNKNOWN [Suspect]
     Indication: GASTROINTESTINAL STROMAL TUMOUR
     Route: 048
     Dates: start: 20110222
  2. TYLENOL (PARACETAMOL) [Concomitant]
  3. MOTRIN (IBUPROFEN) [Concomitant]
  4. NORCO (HYDROCODONE BITARTRATE, PARACETAMOL) [Concomitant]

REACTIONS (3)
  - Neoplasm progression [None]
  - Abdominal discomfort [None]
  - Neoplasm malignant [None]
